FAERS Safety Report 23075016 (Version 1)
Quarter: 2023Q4

REPORT INFORMATION
  Report Type: Spontaneous
  Country: IT (occurrence: IT)
  Receive Date: 20231017
  Receipt Date: 20231017
  Transmission Date: 20240110
  Serious: Yes (Other)
  Sender: FDA-Public Use
  Company Number: IT-BRISTOL-MYERS SQUIBB COMPANY-2023-146528

PATIENT
  Sex: Male

DRUGS (1)
  1. LUSPATERCEPT [Suspect]
     Active Substance: LUSPATERCEPT
     Indication: Thalassaemia beta
     Dosage: DOSE : 1 MG/KG;     FREQ : EVERY 3 WEEKS
     Route: 058

REACTIONS (2)
  - Dyspnoea exertional [Unknown]
  - Thrombocytopenia [Unknown]
